FAERS Safety Report 17929897 (Version 1)
Quarter: 2020Q2

REPORT INFORMATION
  Report Type: Spontaneous
  Country: RU (occurrence: RU)
  Receive Date: 20200623
  Receipt Date: 20200623
  Transmission Date: 20200714
  Serious: Yes (Hospitalization, Other)
  Sender: FDA-Public Use
  Company Number: RU-BION-008786

PATIENT
  Age: 34 Year
  Sex: Male

DRUGS (1)
  1. AMPHETAMINE SULFATE. [Suspect]
     Active Substance: AMPHETAMINE SULFATE
     Dosage: PATIENT RECEIVED INTRANASALLY, INTRAVENOUS AND ORALLY

REACTIONS (3)
  - Drug abuse [Unknown]
  - Drug dependence [Unknown]
  - Hypersexuality [Unknown]
